FAERS Safety Report 19442040 (Version 1)
Quarter: 2021Q2

REPORT INFORMATION
  Report Type: Spontaneous
  Country: US (occurrence: US)
  Receive Date: 20210618
  Receipt Date: 20210618
  Transmission Date: 20210717
  Serious: Yes (Other)
  Sender: FDA-Public Use
  Company Number: None

PATIENT
  Age: 67 Year
  Sex: Male
  Weight: 76.5 kg

DRUGS (8)
  1. LOSARTAN TAB 25 MG. [Suspect]
     Active Substance: LOSARTAN
     Indication: BLOOD PRESSURE MEASUREMENT
     Dosage: ?          QUANTITY:1 TABLET(S);?
     Route: 048
     Dates: start: 20210604, end: 20210615
  2. CENTRUM 50 MEN [Concomitant]
  3. OZEMPIC [Concomitant]
     Active Substance: SEMAGLUTIDE
  4. ATORVASTATIN [Concomitant]
     Active Substance: ATORVASTATIN
  5. COENZYME Q10 [Concomitant]
     Active Substance: DIETARY SUPPLEMENT\UBIDECARENONE
  6. VITAMIN D [Concomitant]
     Active Substance: VITAMIN D NOS
  7. TRESIBA [Concomitant]
     Active Substance: INSULIN DEGLUDEC
  8. METFORMIN [Concomitant]
     Active Substance: METFORMIN HYDROCHLORIDE

REACTIONS (8)
  - Sinusitis [None]
  - Product substitution issue [None]
  - Chest discomfort [None]
  - Burning sensation [None]
  - Sinus congestion [None]
  - Limb discomfort [None]
  - Sexual dysfunction [None]
  - Suspected product quality issue [None]

NARRATIVE: CASE EVENT DATE: 20210607
